FAERS Safety Report 9236738 (Version 1)
Quarter: 2013Q2

REPORT INFORMATION
  Report Type: Spontaneous
  Country: GB (occurrence: GB)
  Receive Date: 20130417
  Receipt Date: 20130417
  Transmission Date: 20140414
  Serious: Yes (Hospitalization)
  Sender: FDA-Public Use
  Company Number: GB-GLAXOSMITHKLINE-B0882517A

PATIENT
  Age: 4 Year
  Sex: Male
  Weight: 17 kg

DRUGS (4)
  1. FLIXONASE AQUEOUS NASAL SPRAY [Suspect]
     Indication: SLEEP APNOEA SYNDROME
     Dosage: 50MCG PER DAY
     Route: 045
     Dates: start: 200911, end: 20110608
  2. IBUPROFEN [Concomitant]
  3. PARACETAMOL [Concomitant]
  4. CO-AMOXICLAV [Concomitant]

REACTIONS (3)
  - Abdominal pain [Recovered/Resolved with Sequelae]
  - Hyperglycaemia [Recovered/Resolved]
  - Vomiting [Unknown]
